FAERS Safety Report 13538928 (Version 2)
Quarter: 2017Q3

REPORT INFORMATION
  Report Type: Spontaneous
  Country: US (occurrence: US)
  Receive Date: 20170512
  Receipt Date: 20170707
  Transmission Date: 20171127
  Serious: Yes (Other)
  Sender: FDA-Public Use
  Company Number: US-JNJFOC-20170407929

PATIENT
  Sex: Female
  Weight: 77.11 kg

DRUGS (1)
  1. INVEGA [Suspect]
     Active Substance: PALIPERIDONE
     Indication: SCHIZOAFFECTIVE DISORDER
     Route: 048
     Dates: end: 201703

REACTIONS (3)
  - Tardive dyskinesia [Not Recovered/Not Resolved]
  - Therapeutic response increased [Unknown]
  - Weight increased [Not Recovered/Not Resolved]
